FAERS Safety Report 13020419 (Version 1)
Quarter: 2016Q4

REPORT INFORMATION
  Report Type: Spontaneous
  Country: US (occurrence: US)
  Receive Date: 20161212
  Receipt Date: 20161212
  Transmission Date: 20170207
  Serious: Yes (Death, Other)
  Sender: FDA-Public Use
  Company Number: PHHY2016US167845

PATIENT

DRUGS (2)
  1. DOCETAXEL. [Suspect]
     Active Substance: DOCETAXEL
     Indication: DISEASE RECURRENCE
  2. DOCETAXEL. [Suspect]
     Active Substance: DOCETAXEL
     Indication: NASOPHARYNGEAL CANCER
     Route: 065

REACTIONS (4)
  - Death [Fatal]
  - Dysphagia [Unknown]
  - Osteoradionecrosis [Unknown]
  - Mucosal ulceration [Unknown]
